FAERS Safety Report 25265660 (Version 2)
Quarter: 2025Q4

REPORT INFORMATION
  Report Type: Spontaneous
  Country: EU (occurrence: EU)
  Receive Date: 20250503
  Receipt Date: 20251006
  Transmission Date: 20260118
  Serious: Yes (Life-Threatening, Hospitalization, Other)
  Sender: CELLTRION
  Company Number: EU-SA-2021SA059745

PATIENT

DRUGS (47)
  1. RITUXIMAB [Suspect]
     Active Substance: RITUXIMAB
     Indication: Diffuse large B-cell lymphoma
     Dosage: UNK UNK, QCY (ADDITIONAL INFORMATION ON DRUG: R-CHOP)
     Dates: start: 20170904, end: 20170905
  2. RITUXIMAB [Suspect]
     Active Substance: RITUXIMAB
     Indication: Post transplant lymphoproliferative disorder
     Dosage: UNK UNK, QCY (ADDITIONAL INFORMATION ON DRUG: R-CHOP)
     Dates: start: 20170925, end: 20170926
  3. RITUXIMAB [Suspect]
     Active Substance: RITUXIMAB
     Dosage: UNK UNK, QCY (ADDITIONAL INFORMATION ON DRUG: R-CHOP)
     Dates: start: 20171018, end: 20171019
  4. RITUXIMAB [Suspect]
     Active Substance: RITUXIMAB
     Dosage: UNK UNK, QCY (ADDITIONAL INFORMATION ON DRUG: R-CHOP)
     Dates: start: 20171108, end: 20171109
  5. RITUXIMAB [Suspect]
     Active Substance: RITUXIMAB
     Dosage: UNK UNK, QCY (ADDITIONAL INFORMATION ON DRUG: R-CHOP)
     Dates: start: 20171215, end: 20171216
  6. RITUXIMAB [Suspect]
     Active Substance: RITUXIMAB
     Dosage: UNK UNK, QCY (ADDITIONAL INFORMATION ON DRUG: R-CHOP)
     Dates: start: 20180123
  7. RITUXIMAB [Suspect]
     Active Substance: RITUXIMAB
     Dosage: UNK UNK, QCY (ADDITIONAL INFORMATION ON DRUG: R-CHOP)
     Dates: start: 20180301
  8. RITUXIMAB [Suspect]
     Active Substance: RITUXIMAB
     Dosage: UNK, 1 CYCLE (ADDITIONAL INFORMATION ON DRUG (FREE TEXT): R-CHOP)
     Dates: start: 201710
  9. PREDNISONE [Suspect]
     Active Substance: PREDNISONE
     Indication: Diffuse large B-cell lymphoma
     Dosage: UNK UNK, QCY (ADDITIONAL INFORMATION ON DRUG: R-CHOP)
     Dates: start: 20170904, end: 20170905
  10. PREDNISONE [Suspect]
     Active Substance: PREDNISONE
     Indication: Post transplant lymphoproliferative disorder
     Dosage: UNK UNK, QCY (ADDITIONAL INFORMATION ON DRUG: R-CHOP)
     Dates: start: 20170925, end: 20170926
  11. PREDNISONE [Suspect]
     Active Substance: PREDNISONE
     Dosage: UNK UNK, QCY (ADDITIONAL INFORMATION ON DRUG: R-CHOP)
     Dates: start: 20171018, end: 20171019
  12. PREDNISONE [Suspect]
     Active Substance: PREDNISONE
     Dosage: UNK UNK, QCY (ADDITIONAL INFORMATION ON DRUG: R-CHOP)
     Dates: start: 20171108, end: 20171109
  13. PREDNISONE [Suspect]
     Active Substance: PREDNISONE
     Dosage: UNK UNK, QCY (ADDITIONAL INFORMATION ON DRUG: R-CHOP)
     Dates: start: 20171215, end: 20171216
  14. PREDNISONE [Suspect]
     Active Substance: PREDNISONE
     Dosage: UNK UNK, QCY (ADDITIONAL INFORMATION ON DRUG: R-CHOP)
     Dates: start: 20180123
  15. PREDNISONE [Suspect]
     Active Substance: PREDNISONE
     Dosage: UNK UNK, QCY (ADDITIONAL INFORMATION ON DRUG: R-CHOP)
     Dates: start: 20180301
  16. PREDNISONE [Suspect]
     Active Substance: PREDNISONE
     Dosage: UNK, 1 CYCLE (ADDITIONAL INFORMATION ON DRUG (FREE TEXT): R-CHOP)
     Dates: start: 201710
  17. CYCLOPHOSPHAMIDE [Suspect]
     Active Substance: CYCLOPHOSPHAMIDE
     Indication: Diffuse large B-cell lymphoma
     Dosage: UNK UNK, QCY (ADDITIONAL INFORMATION ON DRUG: R-CHOP)
     Dates: start: 20170904, end: 20170905
  18. CYCLOPHOSPHAMIDE [Suspect]
     Active Substance: CYCLOPHOSPHAMIDE
     Indication: Post transplant lymphoproliferative disorder
     Dosage: UNK UNK, QCY (ADDITIONAL INFORMATION ON DRUG: R-CHOP)
     Dates: start: 20170925, end: 20170926
  19. CYCLOPHOSPHAMIDE [Suspect]
     Active Substance: CYCLOPHOSPHAMIDE
     Dosage: UNK UNK, QCY (ADDITIONAL INFORMATION ON DRUG: R-CHOP)
     Dates: start: 20171018, end: 20171019
  20. CYCLOPHOSPHAMIDE [Suspect]
     Active Substance: CYCLOPHOSPHAMIDE
     Dosage: UNK UNK, QCY (ADDITIONAL INFORMATION ON DRUG: R-CHOP)
     Dates: start: 20171108, end: 20171109
  21. CYCLOPHOSPHAMIDE [Suspect]
     Active Substance: CYCLOPHOSPHAMIDE
     Dosage: UNK UNK, QCY (ADDITIONAL INFORMATION ON DRUG: R-CHOP)
     Dates: start: 20171215, end: 20171216
  22. CYCLOPHOSPHAMIDE [Suspect]
     Active Substance: CYCLOPHOSPHAMIDE
     Dosage: UNK UNK, QCY (ADDITIONAL INFORMATION ON DRUG: R-CHOP)
     Dates: start: 20180123
  23. CYCLOPHOSPHAMIDE [Suspect]
     Active Substance: CYCLOPHOSPHAMIDE
     Dosage: UNK UNK, QCY (ADDITIONAL INFORMATION ON DRUG: R-CHOP)
     Dates: start: 20180301
  24. CYCLOPHOSPHAMIDE [Suspect]
     Active Substance: CYCLOPHOSPHAMIDE
     Dosage: UNK, 1 CYCLE (ADDITIONAL INFORMATION ON DRUG (FREE TEXT): R-CHOP)
     Dates: start: 201710
  25. VINCRISTINE SULFATE [Suspect]
     Active Substance: VINCRISTINE SULFATE
     Indication: Diffuse large B-cell lymphoma stage III
     Dosage: UNK UNK, QCY (ADDITIONAL INFORMATION ON DRUG: R-CHOP)
     Dates: start: 20170904, end: 20170905
  26. VINCRISTINE SULFATE [Suspect]
     Active Substance: VINCRISTINE SULFATE
     Dosage: UNK UNK, QCY (ADDITIONAL INFORMATION ON DRUG: R-CHOP)
     Dates: start: 20170925, end: 20170926
  27. VINCRISTINE SULFATE [Suspect]
     Active Substance: VINCRISTINE SULFATE
     Dosage: UNK UNK, QCY (ADDITIONAL INFORMATION ON DRUG: R-CHOP)
     Dates: start: 20171018, end: 20171019
  28. VINCRISTINE SULFATE [Suspect]
     Active Substance: VINCRISTINE SULFATE
     Dosage: UNK UNK, QCY (ADDITIONAL INFORMATION ON DRUG: R-CHOP)
     Dates: start: 20171108, end: 20171109
  29. VINCRISTINE SULFATE [Suspect]
     Active Substance: VINCRISTINE SULFATE
     Dosage: UNK UNK, QCY (ADDITIONAL INFORMATION ON DRUG: R-CHOP)
     Dates: start: 20171215, end: 20171216
  30. VINCRISTINE SULFATE [Suspect]
     Active Substance: VINCRISTINE SULFATE
     Dosage: UNK UNK, QCY (ADDITIONAL INFORMATION ON DRUG: R-CHOP)
     Dates: start: 20180123
  31. VINCRISTINE SULFATE [Suspect]
     Active Substance: VINCRISTINE SULFATE
     Dosage: UNK UNK, QCY (ADDITIONAL INFORMATION ON DRUG: R-CHOP)
     Dates: start: 20180301
  32. DOXORUBICIN [Suspect]
     Active Substance: DOXORUBICIN
     Indication: Diffuse large B-cell lymphoma stage III
     Dosage: UNK UNK, QCY (ADDITIONAL INFORMATION ON DRUG: R-CHOP)
     Dates: start: 20170904, end: 20170905
  33. DOXORUBICIN [Suspect]
     Active Substance: DOXORUBICIN
     Dosage: UNK UNK, QCY (ADDITIONAL INFORMATION ON DRUG: R-CHOP)
     Dates: start: 20170925, end: 20170926
  34. DOXORUBICIN [Suspect]
     Active Substance: DOXORUBICIN
     Dosage: UNK UNK, QCY (ADDITIONAL INFORMATION ON DRUG: R-CHOP)
     Dates: start: 20171018, end: 20171019
  35. DOXORUBICIN [Suspect]
     Active Substance: DOXORUBICIN
     Dosage: UNK UNK, QCY (ADDITIONAL INFORMATION ON DRUG: R-CHOP)
     Dates: start: 20171108, end: 20171109
  36. DOXORUBICIN [Suspect]
     Active Substance: DOXORUBICIN
     Dosage: UNK UNK, QCY (ADDITIONAL INFORMATION ON DRUG: R-CHOP)
     Dates: start: 20171215, end: 20171216
  37. DOXORUBICIN [Suspect]
     Active Substance: DOXORUBICIN
     Dosage: UNK UNK, QCY (ADDITIONAL INFORMATION ON DRUG: R-CHOP)
     Dates: start: 20180123
  38. DOXORUBICIN [Suspect]
     Active Substance: DOXORUBICIN
     Dosage: UNK UNK, QCY (ADDITIONAL INFORMATION ON DRUG: R-CHOP)
     Dates: start: 20180301
  39. DOXORUBICIN [Suspect]
     Active Substance: DOXORUBICIN
     Dosage: UNK
     Dates: start: 201710
  40. MYCOPHENOLATE MOFETIL [Suspect]
     Active Substance: MYCOPHENOLATE MOFETIL
     Indication: Immunosuppressant drug therapy
     Dosage: UNK
     Dates: start: 2006, end: 201709
  41. CYCLOSPORINE [Suspect]
     Active Substance: CYCLOSPORINE
     Indication: Immunosuppressant drug therapy
     Dosage: UNK
     Dates: start: 2006, end: 2018
  42. CYCLOSPORINE [Suspect]
     Active Substance: CYCLOSPORINE
     Indication: Immunosuppressant drug therapy
     Dosage: UNK
     Dates: start: 2006
  43. VINCRISTINE [Suspect]
     Active Substance: VINCRISTINE
     Indication: Diffuse large B-cell lymphoma
     Dosage: 1 CYCLE (ADDITIONAL INFORMATION ON DRUG (FREE TEXT): R-CHOP)
     Dates: start: 201710
  44. VINCRISTINE [Suspect]
     Active Substance: VINCRISTINE
     Indication: Post transplant lymphoproliferative disorder
  45. FILGRASTIM [Concomitant]
     Active Substance: FILGRASTIM
     Indication: Prophylaxis
     Dosage: UNK
     Dates: start: 2017
  46. COTRIMOXAZOLE [Concomitant]
     Active Substance: SULFAMETHOXAZOLE\TRIMETHOPRIM
     Indication: Antifungal prophylaxis
     Dosage: UNK
  47. COTRIMOXAZOLE [Concomitant]
     Active Substance: SULFAMETHOXAZOLE\TRIMETHOPRIM
     Dosage: 960 MG, BID (EVERY 12 HOURS)
     Route: 042

REACTIONS (10)
  - Dysuria [Recovered/Resolved]
  - Atrial fibrillation [Recovered/Resolved]
  - Asthenia [Recovered/Resolved]
  - Neutropenia [Recovered/Resolved]
  - Anaemia [Recovered/Resolved]
  - Pancytopenia [Unknown]
  - Febrile neutropenia [Recovered/Resolved]
  - Staphylococcal infection [Recovered/Resolved]
  - Klebsiella infection [Recovered/Resolved]
  - Oedema peripheral [Recovered/Resolved]

NARRATIVE: CASE EVENT DATE: 20170101
